FAERS Safety Report 6288759-2 (Version None)
Quarter: 2009Q3

REPORT INFORMATION
  Report Type: 
  Country: None (occurrence: None)
  Receive Date: 20090729
  Receipt Date: 20090717
  Transmission Date: 20100115
  Serious: No
  Sender: FDA-Public Use
  Company Number: US-JNJFOC-20090706716

PATIENT
  Sex: Female
  Weight: 63.5 kg

DRUGS (6)
  1. DURAGESIC-100 [Suspect]
     Route: 062
  2. DURAGESIC-100 [Suspect]
     Indication: NEURALGIA
     Route: 062
  3. ACIPHEX [Concomitant]
     Indication: GASTRIC DISORDER
     Route: 048
  4. ZOFRAN [Concomitant]
     Indication: NAUSEA
     Route: 048
  5. PERCOCET [Concomitant]
     Indication: BREAKTHROUGH PAIN
     Dosage: 5-325 MG AS NEEDED
     Route: 048
  6. DILAUDID [Concomitant]
     Indication: PAIN
     Dosage: AS NEEDED
     Route: 065

REACTIONS (1)
  - DRUG ADMINISTERED AT INAPPROPRIATE SITE [None]
